FAERS Safety Report 8796834 (Version 2)
Quarter: 2015Q1

REPORT INFORMATION
  Report Type: Report from Study
  Country: US (occurrence: US)
  Receive Date: 20120919
  Receipt Date: 20150319
  Transmission Date: 20150721
  Serious: Yes (Death)
  Sender: FDA-Public Use
  Company Number: US-ROCHE-1123583

PATIENT
  Sex: Female

DRUGS (14)
  1. AVASTIN [Suspect]
     Active Substance: BEVACIZUMAB
     Route: 042
  2. PERCOCET [Concomitant]
     Active Substance: ACETAMINOPHEN\OXYCODONE HYDROCHLORIDE
     Dosage: 10-325 MG
     Route: 065
  3. COMPAZINE [Concomitant]
     Active Substance: PROCHLORPERAZINE MALEATE
     Route: 048
  4. TYLENOL [Concomitant]
     Active Substance: ACETAMINOPHEN
  5. AVASTIN [Suspect]
     Active Substance: BEVACIZUMAB
     Indication: OVARIAN CANCER
     Route: 042
     Dates: start: 20070823
  6. AVASTIN [Suspect]
     Active Substance: BEVACIZUMAB
     Route: 042
  7. AVASTIN [Suspect]
     Active Substance: BEVACIZUMAB
     Route: 042
  8. SOY ISOFLAVONES [Concomitant]
     Active Substance: SOY ISOFLAVONES
     Route: 065
  9. PRILOSEC [Concomitant]
     Active Substance: OMEPRAZOLE MAGNESIUM
     Route: 065
  10. ARANESP [Concomitant]
     Active Substance: DARBEPOETIN ALFA
     Route: 065
  11. IBUPROFEN. [Concomitant]
     Active Substance: IBUPROFEN
  12. CYTOXAN [Concomitant]
     Active Substance: CYCLOPHOSPHAMIDE
     Route: 048
  13. IPSATOL [Concomitant]
  14. ATENOLOL. [Concomitant]
     Active Substance: ATENOLOL
     Route: 065

REACTIONS (2)
  - Death [Fatal]
  - Off label use [Unknown]
